FAERS Safety Report 5320062-7 (Version None)
Quarter: 2007Q2

REPORT INFORMATION
  Report Type: 
  Country: None (occurrence: None)
  Receive Date: 20070509
  Receipt Date: 20070504
  Transmission Date: 20071010
  Serious: Yes (Other)
  Sender: FDA-Public Use
  Company Number: IT-AVENTIS-200713716GDDC

PATIENT
  Age: 22 Year
  Sex: Male

DRUGS (1)
  1. KETEK [Suspect]
     Indication: TONSILLITIS
     Route: 048
     Dates: start: 20070307

REACTIONS (2)
  - ALANINE AMINOTRANSFERASE INCREASED [None]
  - ASPARTATE AMINOTRANSFERASE INCREASED [None]
